FAERS Safety Report 7636053-7 (Version None)
Quarter: 2011Q3

REPORT INFORMATION
  Report Type: 
  Country: None (occurrence: None)
  Receive Date: 20110726
  Receipt Date: 20110720
  Transmission Date: 20111222
  Serious: Yes (Other)
  Sender: FDA-Public Use
  Company Number: DE-PFIZER INC-2011164251

PATIENT
  Sex: Female
  Weight: 78 kg

DRUGS (2)
  1. METOPROLOL [Concomitant]
     Indication: ARRHYTHMIA
     Dosage: 50 MG, 3X/DAY
  2. XALATAN [Suspect]
     Indication: GLAUCOMA
     Dosage: UNK
     Route: 047
     Dates: start: 20101201

REACTIONS (3)
  - PALPITATIONS [None]
  - EXTRASYSTOLES [None]
  - TACHYCARDIA [None]
